FAERS Safety Report 18897134 (Version 4)
Quarter: 2021Q1

REPORT INFORMATION
  Report Type: Spontaneous
  Country: US (occurrence: US)
  Receive Date: 20210215
  Receipt Date: 20210309
  Transmission Date: 20210420
  Serious: No
  Sender: FDA-Public Use
  Company Number: US-SA-2021SA051379

PATIENT
  Age: 33 Year
  Sex: Female

DRUGS (2)
  1. DUPIXENT [Suspect]
     Active Substance: DUPILUMAB
     Dosage: 300 MG, QOW
     Route: 058
     Dates: start: 20210115
  2. DUPIXENT [Suspect]
     Active Substance: DUPILUMAB
     Indication: ECZEMA
     Dosage: UNK, 1X
     Dates: start: 20201223, end: 20201223

REACTIONS (7)
  - Dry eye [Unknown]
  - Injection site swelling [Not Recovered/Not Resolved]
  - Injection site urticaria [Not Recovered/Not Resolved]
  - Incorrect dose administered [Unknown]
  - Injection site erythema [Not Recovered/Not Resolved]
  - Wrong technique in device usage process [Not Recovered/Not Resolved]
  - Injection site discolouration [Not Recovered/Not Resolved]

NARRATIVE: CASE EVENT DATE: 2021
